FAERS Safety Report 6097024-8 (Version None)
Quarter: 2009Q1

REPORT INFORMATION
  Report Type: 
  Country: None (occurrence: None)
  Receive Date: 20090227
  Receipt Date: 20090223
  Transmission Date: 20090719
  Serious: Yes (Other)
  Sender: FDA-Public Use
  Company Number: US-AVENTIS-200818624US

PATIENT
  Sex: Female
  Weight: 77.56 kg

DRUGS (10)
  1. LANTUS [Suspect]
     Route: 058
     Dates: start: 20080701
  2. LANTUS [Suspect]
     Route: 058
     Dates: start: 20080701
  3. SIMVASTATIN [Concomitant]
     Dosage: DOSE: UNK
  4. POTASSIUM CHLORIDE [Concomitant]
     Dosage: DOSE: UNK
  5. SYNTHROID [Concomitant]
     Dosage: DOSE: UNK
  6. FUROSEMIDE [Concomitant]
     Dosage: DOSE: UNK
  7. DIGOXIN [Concomitant]
     Dosage: DOSE: UNK
  8. LISINOPRIL [Concomitant]
  9. COUMADIN [Concomitant]
     Dosage: DOSE: UNK
  10. CARVEDILOL [Concomitant]

REACTIONS (2)
  - FALL [None]
  - HIP FRACTURE [None]
